FAERS Safety Report 11216728 (Version 1)
Quarter: 2015Q2

REPORT INFORMATION
  Report Type: Spontaneous
  Country: JP (occurrence: JP)
  Receive Date: 20150624
  Receipt Date: 20150624
  Transmission Date: 20150821
  Serious: Yes (Death)
  Sender: FDA-Public Use
  Company Number: JP-TEVA-570765ISR

PATIENT
  Sex: Male
  Weight: 46 kg

DRUGS (2)
  1. E-FEN BUCCAL [Suspect]
     Active Substance: FENTANYL CITRATE
     Indication: BREAKTHROUGH PAIN
     Dosage: 100MICROGRAM-300MICROGRAM
     Route: 002
     Dates: start: 20150128, end: 20150128
  2. FENTOS [Concomitant]
     Active Substance: FENTANYL
     Indication: CANCER PAIN
     Dosage: 10 MILLIGRAM DAILY;
     Route: 062
     Dates: start: 20150123, end: 20150201

REACTIONS (2)
  - Gastric cancer [Fatal]
  - Condition aggravated [Fatal]
